FAERS Safety Report 6301240-7 (Version None)
Quarter: 2009Q3

REPORT INFORMATION
  Report Type: 
  Country: None (occurrence: None)
  Receive Date: 20090806
  Receipt Date: 20090806
  Transmission Date: 20100115
  Serious: Yes (Disabling)
  Sender: FDA-Public Use
  Company Number: None

PATIENT
  Age: 83 Year
  Sex: Female
  Weight: 72.5755 kg

DRUGS (1)
  1. NEOMYCIN AND POLYMYXIN B SULFATES AND HYDROCORTISONE [Suspect]
     Indication: EAR INFECTION
     Dosage: 4 DROPS  4XS DAILY 10 DAYS ONLY TOOK 7 DAYS
     Dates: start: 20090629, end: 20090705

REACTIONS (1)
  - DEAFNESS UNILATERAL [None]
